FAERS Safety Report 24955784 (Version 1)
Quarter: 2025Q1

REPORT INFORMATION
  Report Type: Spontaneous
  Country: ID (occurrence: ID)
  Receive Date: 20250211
  Receipt Date: 20250211
  Transmission Date: 20250409
  Serious: Yes (Death)
  Sender: BAYER HEALTHCARE PHARMACEUTICALS INC.
  Company Number: ID-BAYER-2025A014999

PATIENT
  Age: 63 Year
  Sex: Male

DRUGS (2)
  1. FINERENONE [Suspect]
     Active Substance: FINERENONE
     Indication: Renal injury
  2. VITAMINS NOS [Suspect]
     Active Substance: VITAMINS
     Indication: Renal injury

REACTIONS (2)
  - Renal impairment [Fatal]
  - Product monitoring error [None]
